FAERS Safety Report 4376469-8 (Version None)
Quarter: 2004Q2

REPORT INFORMATION
  Report Type: 
  Country: None (occurrence: None)
  Receive Date: 20040608
  Receipt Date: 20040524
  Transmission Date: 20050107
  Serious: Yes (Death)
  Sender: FDA-Public Use
  Company Number: JAUSA8123

PATIENT
  Age: 36 Year
  Sex: Male

DRUGS (1)
  1. DURAGESIC [Suspect]
     Indication: INTENTIONAL MISUSE
     Dosage: RESPIRATORY (INHALATION)
     Route: 055
     Dates: start: 19921217

REACTIONS (7)
  - BLOOD PRESSURE IMMEASURABLE [None]
  - CIRCULATORY COLLAPSE [None]
  - COMA [None]
  - DRUG ABUSER [None]
  - HEART RATE INCREASED [None]
  - OVERDOSE [None]
  - RESPIRATORY DEPRESSION [None]
